FAERS Safety Report 12401574 (Version 2)
Quarter: 2016Q2

REPORT INFORMATION
  Report Type: Spontaneous
  Country: US (occurrence: US)
  Receive Date: 20160525
  Receipt Date: 20160527
  Transmission Date: 20160815
  Serious: No
  Sender: FDA-Public Use
  Company Number: US-SA-2015SA170687

PATIENT
  Age: 94 Year
  Sex: Female
  Weight: 74.38 kg

DRUGS (2)
  1. LANTUS SOLOSTAR [Suspect]
     Active Substance: INSULIN GLARGINE
     Indication: TYPE 2 DIABETES MELLITUS
     Dosage: DOSE:28 UNIT(S)
     Route: 065
     Dates: start: 20150518
  2. SOLOSTAR [Concomitant]
     Active Substance: DEVICE

REACTIONS (3)
  - Osteitis [Not Recovered/Not Resolved]
  - Erythema [Not Recovered/Not Resolved]
  - Dyspnoea [Not Recovered/Not Resolved]
